FAERS Safety Report 8256024-X (Version None)
Quarter: 2012Q2

REPORT INFORMATION
  Report Type: 
  Country: None (occurrence: None)
  Receive Date: 20120403
  Receipt Date: 20120323
  Transmission Date: 20120825
  Serious: Yes (Hospitalization, Disabling)
  Sender: FDA-Public Use
  Company Number: US-ROCHE-1052902

PATIENT
  Sex: Male
  Weight: 81.72 kg

DRUGS (5)
  1. OMALIZUMAB [Suspect]
     Indication: ASTHMA
     Dosage: THREE INJECTIONS
     Route: 058
     Dates: start: 20050301, end: 20120102
  2. ADVAIR DISKUS 100/50 [Concomitant]
  3. SINGULAIR [Concomitant]
  4. CLOBETASOL PROPIONATE [Concomitant]
  5. LISINOPRIL [Concomitant]

REACTIONS (2)
  - ECZEMA [None]
  - PNEUMONIA [None]
